FAERS Safety Report 6212460-4 (Version None)
Quarter: 2009Q2

REPORT INFORMATION
  Report Type: 
  Country: None (occurrence: None)
  Receive Date: 20090529
  Receipt Date: 20090521
  Transmission Date: 20091009
  Serious: Yes (Death, Life-Threatening, Hospitalization)
  Sender: FDA-Public Use
  Company Number: 090508-0000695

PATIENT
  Age: 55 Year
  Sex: Male

DRUGS (4)
  1. INDOCIN [Suspect]
     Indication: BACK PAIN
     Dosage: 75 MG; TID; PO
     Route: 048
  2. INDOCIN [Suspect]
     Indication: PLEURITIC PAIN
     Dosage: 75 MG; TID; PO
     Route: 048
  3. MORPHINE SULFATE INJ [Suspect]
     Indication: BACK PAIN
  4. MORPHINE SULFATE INJ [Suspect]
     Indication: PLEURITIC PAIN

REACTIONS (16)
  - AORTIC ARTERIOSCLEROSIS [None]
  - AORTIC DISORDER [None]
  - DEPRESSED LEVEL OF CONSCIOUSNESS [None]
  - EXSANGUINATION [None]
  - GASTRIC DISORDER [None]
  - GASTRIC FISTULA [None]
  - GASTRIC ULCER [None]
  - GASTROINTESTINAL HAEMORRHAGE [None]
  - HAEMATEMESIS [None]
  - HAEMOGLOBIN DECREASED [None]
  - HAEMORRHAGE [None]
  - HYPOVOLAEMIC SHOCK [None]
  - INTERNATIONAL NORMALISED RATIO INCREASED [None]
  - POST PROCEDURAL COMPLICATION [None]
  - VENTRICULAR FIBRILLATION [None]
  - WHITE BLOOD CELL COUNT INCREASED [None]
